FAERS Safety Report 16807520 (Version 2)
Quarter: 2019Q3

REPORT INFORMATION
  Report Type: Report from Study
  Country: None (occurrence: FI)
  Receive Date: 20190913
  Receipt Date: 20190925
  Transmission Date: 20191005
  Serious: Yes (Hospitalization)
  Sender: FDA-Public Use
  Company Number: FI-ABBVIE-19K-055-2918680-00

PATIENT
  Age: 58 Year
  Sex: Female

DRUGS (9)
  1. SOMAC [Concomitant]
     Active Substance: PANTOPRAZOLE SODIUM
     Indication: PRODUCT USED FOR UNKNOWN INDICATION
  2. DUODOPA [Suspect]
     Active Substance: CARBIDOPA\LEVODOPA
     Indication: PARKINSON^S DISEASE
     Dosage: MD: 10ML, CONTINUOUS 3.0ML/H, EXTRA 1.0 ML, 16H TREATMENT
     Route: 050
     Dates: start: 201908, end: 2019
  3. TAMOFEN [Concomitant]
     Active Substance: TAMOXIFEN CITRATE
     Indication: PRODUCT USED FOR UNKNOWN INDICATION
     Dates: start: 20171212
  4. BISOPROACT [Concomitant]
     Active Substance: BISOPROLOL
     Indication: PRODUCT USED FOR UNKNOWN INDICATION
     Dates: start: 20180414
  5. ATORVASTATIN [Concomitant]
     Active Substance: ATORVASTATIN
     Indication: PRODUCT USED FOR UNKNOWN INDICATION
     Dates: start: 20180414
  6. DUODOPA [Suspect]
     Active Substance: CARBIDOPA\LEVODOPA
     Dosage: MD: 10 ML; CONTINUOUS INFUSION 3.1 ML/H; EXTRA DOSE 1.0 ML; 16H?TREATMENT
     Route: 050
     Dates: start: 201909
  7. LEVOCAR [Concomitant]
     Indication: PRODUCT USED FOR UNKNOWN INDICATION
  8. ESCITALOPRAM [Concomitant]
     Active Substance: ESCITALOPRAM OXALATE
     Indication: PRODUCT USED FOR UNKNOWN INDICATION
  9. PRIMASPAN [Concomitant]
     Active Substance: ASPIRIN
     Indication: PRODUCT USED FOR UNKNOWN INDICATION
     Dates: start: 20180414

REACTIONS (12)
  - Acarodermatitis [Unknown]
  - Device issue [Not Recovered/Not Resolved]
  - Stoma site inflammation [Unknown]
  - Malabsorption [Recovered/Resolved]
  - Aphasia [Not Recovered/Not Resolved]
  - Mood altered [Not Recovered/Not Resolved]
  - Infection parasitic [Recovered/Resolved]
  - Gait disturbance [Not Recovered/Not Resolved]
  - General physical condition decreased [Recovered/Resolved]
  - Drug ineffective [Recovered/Resolved]
  - Musculoskeletal disorder [Recovered/Resolved]
  - Nervousness [Not Recovered/Not Resolved]

NARRATIVE: CASE EVENT DATE: 2019
